FAERS Safety Report 5421680-8 (Version None)
Quarter: 2007Q3

REPORT INFORMATION
  Report Type: 
  Country: None (occurrence: None)
  Receive Date: 20070821
  Receipt Date: 20070814
  Transmission Date: 20080115
  Serious: Yes (Life-Threatening, Other)
  Sender: FDA-Public Use
  Company Number: US-MERCK-0707USA03276

PATIENT
  Age: 62 Year
  Sex: Female
  Weight: 93 kg

DRUGS (17)
  1. JANUVIA [Suspect]
     Indication: TYPE 2 DIABETES MELLITUS
     Route: 048
     Dates: start: 20070501, end: 20070507
  2. ENALAPRIL MALEATE [Concomitant]
     Route: 065
  3. LAMICTAL [Concomitant]
     Route: 065
  4. GLIPIZIDE [Concomitant]
     Route: 065
  5. MELOXICAM [Concomitant]
     Route: 065
  6. METFORMIN [Concomitant]
     Route: 065
  7. LEXAPRO [Concomitant]
     Route: 065
  8. FIBERCON [Concomitant]
     Route: 065
  9. ESTRADIOL [Concomitant]
     Route: 065
  10. FUROSEMIDE [Concomitant]
     Route: 065
  11. SULFAZINE [Concomitant]
     Route: 065
  12. VERELAN [Concomitant]
     Route: 065
  13. ZYPREXA [Concomitant]
     Route: 065
  14. CLONAZEPAM [Concomitant]
     Route: 065
  15. COZAAR [Concomitant]
     Route: 048
  16. AMBIEN [Concomitant]
     Route: 065
  17. LEVAQUIN [Concomitant]
     Route: 065

REACTIONS (4)
  - BLOOD GLUCOSE INCREASED [None]
  - DRUG ERUPTION [None]
  - DYSPNOEA [None]
  - ERYTHEMA MULTIFORME [None]
